FAERS Safety Report 5392272-4 (Version None)
Quarter: 2007Q3

REPORT INFORMATION
  Report Type: 
  Country: None (occurrence: None)
  Receive Date: 20070720
  Receipt Date: 20070713
  Transmission Date: 20080115
  Serious: Yes (Other)
  Sender: FDA-Public Use
  Company Number: ES-GENENTECH-244500

PATIENT
  Age: 39 Year
  Sex: Male

DRUGS (1)
  1. RAPTIVA [Suspect]
     Indication: PSORIASIS
     Dosage: UNK, 1/WEEK
     Route: 058
     Dates: start: 20060801, end: 20070501

REACTIONS (2)
  - IMMUNOGLOBULINS [None]
  - LYMPHOCYTE MORPHOLOGY ABNORMAL [None]
